FAERS Safety Report 18590002 (Version 1)
Quarter: 2020Q4

REPORT INFORMATION
  Report Type: Spontaneous
  Country: US (occurrence: US)
  Receive Date: 20201207
  Receipt Date: 20201207
  Transmission Date: 20210114
  Serious: Yes (Other)
  Sender: FDA-Public Use
  Company Number: None

PATIENT
  Age: 69 Year
  Sex: Male

DRUGS (1)
  1. EVEROLIMUS 0.75MG TAB [Suspect]
     Active Substance: EVEROLIMUS
     Indication: RENAL TRANSPLANT
     Dosage: ?          OTHER DOSE:1 TAB;?
     Route: 048
     Dates: start: 20201117

REACTIONS (3)
  - Brain neoplasm malignant [None]
  - Rib fracture [None]
  - Lung neoplasm malignant [None]

NARRATIVE: CASE EVENT DATE: 20201202
